FAERS Safety Report 10993472 (Version 1)
Quarter: 2015Q2

REPORT INFORMATION
  Report Type: Spontaneous
  Country: US (occurrence: None)
  Receive Date: 20150406
  Receipt Date: 20150406
  Transmission Date: 20150821
  Serious: Yes (Other)
  Sender: FDA-Public Use
  Company Number: None

PATIENT
  Age: 42 Year
  Sex: Female
  Weight: 58.97 kg

DRUGS (3)
  1. SUDAFED [Concomitant]
     Active Substance: PSEUDOEPHEDRINE HYDROCHLORIDE
  2. MONOLUKAST [Concomitant]
  3. LEVOFLOXACIN 500 MG [Suspect]
     Active Substance: LEVOFLOXACIN
     Indication: SINUSITIS
     Dosage: 1 TABLET, ONCE DAILY, BY MOUTH
     Route: 048
     Dates: start: 20111006, end: 20111015

REACTIONS (14)
  - Nausea [None]
  - Fatigue [None]
  - Back pain [None]
  - Vomiting [None]
  - Pain [None]
  - Dizziness [None]
  - Hypoaesthesia [None]
  - Muscle spasms [None]
  - Abdominal pain [None]
  - Gait disturbance [None]
  - Rash [None]
  - Arthralgia [None]
  - Pain in extremity [None]
  - Headache [None]

NARRATIVE: CASE EVENT DATE: 20111019
